FAERS Safety Report 16871102 (Version 13)
Quarter: 2021Q1

REPORT INFORMATION
  Report Type: Spontaneous
  Country: US (occurrence: US)
  Receive Date: 20190930
  Receipt Date: 20210114
  Transmission Date: 20210419
  Serious: Yes (Hospitalization, Other)
  Sender: FDA-Public Use
  Company Number: US-B.I. PHARMACEUTICALS,INC./RIDGEFIELD-2019-BI-104424

PATIENT
  Age: 53 Year
  Sex: Male
  Weight: 131.81 kg

DRUGS (52)
  1. ASPIRIN EC [Concomitant]
     Active Substance: ASPIRIN
     Indication: CORONARY ARTERY DISEASE
     Dosage: DELAYED RELEASE (E.C.)
     Route: 048
     Dates: start: 20170823
  2. COREG [Concomitant]
     Active Substance: CARVEDILOL
     Indication: CHRONIC LEFT VENTRICULAR FAILURE
     Dosage: TAKE 1 TAB BY MOUTH 2 TIMES DAILY.
     Route: 048
     Dates: start: 20180611
  3. NOVOLOG [Concomitant]
     Active Substance: INSULIN ASPART
     Indication: DIABETES MELLITUS INADEQUATE CONTROL
     Dosage: 100UNIT/ML, QTY:1; INJECT 10 UNITS SUBCUTANEOUSLY THREE TIMES DAILY BEFORE MEAL(S)
     Route: 058
     Dates: start: 20171227
  4. TOUJEO [Concomitant]
     Active Substance: INSULIN GLARGINE
     Dosage: 100UNIT/ML, QTY:15; INJECT 15?20 UNITS SUBCUTANEOUSLY THREE TIMES DAILY BEFORE MEAL(S)
     Route: 058
  5. LISINOPRIL [LISINOPRIL DIHYDRATE] [Concomitant]
     Indication: CHRONIC LEFT VENTRICULAR FAILURE
     Route: 048
     Dates: start: 20171129
  6. COUMADIN [Concomitant]
     Active Substance: WARFARIN SODIUM
     Dosage: TAKE AS DIRECTED BY PHARMACY ANTICOAGULATION CLINIC AND TITRATE TO MAINTAIN THERAPEUTIC INR
     Route: 048
     Dates: start: 20180611
  7. DULCOLAX (BISACODYL) [Concomitant]
     Active Substance: BISACODYL
     Indication: PRODUCT USED FOR UNKNOWN INDICATION
     Route: 048
  8. ADMELOG [Concomitant]
     Active Substance: INSULIN LISPRO
     Indication: PRODUCT USED FOR UNKNOWN INDICATION
     Route: 065
  9. FLEXERIL [Concomitant]
     Active Substance: CYCLOBENZAPRINE HYDROCHLORIDE
     Indication: MUSCLE SPASMS
     Dosage: QTY: 30; TAKE ONE TABLET BY MOUTH EVERY 8 HOURS AS NEEDED FOR MUSCLE SPASM
     Route: 048
  10. NORCO [Concomitant]
     Active Substance: ACETAMINOPHEN\HYDROCODONE BITARTRATE
     Dosage: FORM STRENGTH: 5?325 MG; TAKE 1 TAB 2 TIMES DAILY AS NEEDED (TAKE AS NEEDED FOR PAIN).
     Route: 048
  11. FLAGYL [Concomitant]
     Active Substance: METRONIDAZOLE\METRONIDAZOLE HYDROCHLORIDE
     Indication: PRODUCT USED FOR UNKNOWN INDICATION
     Route: 048
     Dates: start: 20171129
  12. IMDUR [Concomitant]
     Active Substance: ISOSORBIDE MONONITRATE
     Indication: CORONARY ARTERY DISEASE
     Route: 048
  13. JARDIANCE [Suspect]
     Active Substance: EMPAGLIFLOZIN
     Indication: INFECTION
  14. LASIX [Concomitant]
     Active Substance: FUROSEMIDE
     Indication: PRODUCT USED FOR UNKNOWN INDICATION
     Route: 048
     Dates: start: 20171129
  15. LASIX [Concomitant]
     Active Substance: FUROSEMIDE
     Dosage: QTY: 30
     Route: 048
  16. LISINOPRIL [LISINOPRIL DIHYDRATE] [Concomitant]
     Route: 048
  17. LISINOPRIL [LISINOPRIL DIHYDRATE] [Concomitant]
     Route: 048
     Dates: start: 20180920
  18. ZYVOX [Concomitant]
     Active Substance: LINEZOLID
     Indication: PRODUCT USED FOR UNKNOWN INDICATION
     Route: 048
  19. OZEMPIC [Concomitant]
     Active Substance: SEMAGLUTIDE
     Dosage: INJECT 0.25 MG WEEKLY FOR 2 WEEKS THEN INCREASE TO 0.5 MG WEEKLY.
     Route: 058
  20. DRISDOL [Concomitant]
     Active Substance: ERGOCALCIFEROL
     Dosage: QTY: 8; TAKE ONE CAPSULE BY MOUTH TWICE A WEEK
     Route: 048
  21. NEURONTIN [Concomitant]
     Active Substance: GABAPENTIN
     Indication: DIABETIC NEUROPATHY
     Dosage: TAKE THREE CAPSULES BY MOUTH THREE TIMES DAILY
     Route: 048
     Dates: start: 20171129
  22. DESYREL [Concomitant]
     Active Substance: TRAZODONE HYDROCHLORIDE
     Indication: SLEEP DISORDER
     Dosage: TAKE 1 TAB BY MOUTH NIGHTL\, AS NEEDED.
     Route: 048
  23. DRISDOL [Concomitant]
     Active Substance: ERGOCALCIFEROL
     Indication: PRODUCT USED FOR UNKNOWN INDICATION
     Dosage: QTY: 4; TAKE ONE CAPSULE BY MOUTH ONCE A WEEK
     Route: 048
  24. JARDIANCE [Suspect]
     Active Substance: EMPAGLIFLOZIN
     Indication: DRUG THERAPY
  25. PROTONIX [Concomitant]
     Active Substance: PANTOPRAZOLE SODIUM
     Indication: GASTROOESOPHAGEAL REFLUX DISEASE
     Dosage: TABLET, DELAYED RELEASE (E.C.) / TAKE 1 TAB BY MOUTH DAILY.?PATIENT NOT TAKING: REPORTED ON 10/7/201
     Route: 048
     Dates: start: 20171129
  26. LIPITOR [Concomitant]
     Active Substance: ATORVASTATIN CALCIUM
     Indication: CORONARY ARTERY DISEASE
     Dosage: 90 TAB
     Route: 048
     Dates: start: 20171129
  27. VITAMIN K [Concomitant]
     Active Substance: PHYTONADIONE
     Indication: ATRIAL FIBRILLATION
     Route: 065
  28. NITROSTAT [Concomitant]
     Active Substance: NITROGLYCERIN
     Indication: CHEST PAIN
     Dosage: PLACE 1 TAB UNDER THE TONGUE EVERY 5 MINUTES AS NEEDED FOR CHEST PAIN.
     Route: 060
  29. PRILOSEC [Concomitant]
     Active Substance: OMEPRAZOLE MAGNESIUM
     Indication: PRODUCT USED FOR UNKNOWN INDICATION
     Dosage: TAKE 1 CAP BY MOUTH DAILY
     Route: 048
  30. OZEMPIC [Concomitant]
     Active Substance: SEMAGLUTIDE
     Indication: PRODUCT USED FOR UNKNOWN INDICATION
     Dosage: 0.25 MG OR 0.5 M (2 MG/1.5 ML) SUBQ PEN INIECTOR
     Route: 058
  31. GLUCOPHAGE XR [Concomitant]
     Active Substance: METFORMIN HYDROCHLORIDE
     Dosage: TAKE 1 TAB BY MOUTH 2 TIMES DAILY (WITH MEALS). PATIENT NOT TAKING: REPORTED ON 10/7/2018
     Route: 048
     Dates: start: 20180625
  32. NOVOLOG [Concomitant]
     Active Substance: INSULIN ASPART
     Dosage: FORM STRENGTH: 100 UNIT/ML SUBQ INSULIN PEN; USE 3X DAILY. AVERAGE DAILY DOSE 40 UNITS.
     Route: 058
     Dates: start: 20161202
  33. REGLAN [Concomitant]
     Active Substance: METOCLOPRAMIDE HYDROCHLORIDE
     Indication: PRODUCT USED FOR UNKNOWN INDICATION
     Dosage: TAKE TWO TABLETS BY MOUTH 4 TIMES DAILY (BEFORE MEAL(S) AND NIGHTLY)
     Route: 048
     Dates: start: 20170301
  34. LIPITOR [Concomitant]
     Active Substance: ATORVASTATIN CALCIUM
     Dosage: TAKE 1 TAB BY MOUTH DAILY.
     Route: 048
     Dates: start: 20180611
  35. BASAGLAR [Concomitant]
     Active Substance: INSULIN GLARGINE
     Indication: PRODUCT USED FOR UNKNOWN INDICATION
     Dosage: 100UNIT/ML (3 ML) SUBQ INSULIN PEN
     Route: 058
  36. COREG [Concomitant]
     Active Substance: CARVEDILOL
     Indication: HYPERTENSION
     Route: 048
  37. COLLAGENASE SANTYL [Concomitant]
     Active Substance: COLLAGENASE CLOSTRIDIUM HISTOLYTICUM
     Indication: PRODUCT USED FOR UNKNOWN INDICATION
     Dosage: APPLY TOPICALLY DAILY
     Route: 061
     Dates: start: 20171129, end: 20171209
  38. LOVENOX [Concomitant]
     Active Substance: ENOXAPARIN SODIUM
     Indication: PRODUCT USED FOR UNKNOWN INDICATION
     Dosage: FORM STRENGTH: 120 MG/0.8 ML SUBQ SYRINGE (INJECT UNDER THE SKIN)
     Route: 058
     Dates: start: 20171002
  39. NOVOLOG [Concomitant]
     Active Substance: INSULIN ASPART
     Indication: INFECTION
     Dosage: 100UNIT/ML, QTY:15; INJECT 15?20 UNITS SUBCUTANEOUSLY THREE TIMES DAILY BEFORE MEAL(S)
     Route: 058
  40. TOUJEO [Concomitant]
     Active Substance: INSULIN GLARGINE
     Indication: PRODUCT USED FOR UNKNOWN INDICATION
     Dosage: 300IU/ML , QTY:6; INJECT 70 UNITS SUBCUTANEOUSLY EVERY 24 HOURS,
     Route: 058
     Dates: start: 20180529
  41. TOUJEO [Concomitant]
     Active Substance: INSULIN GLARGINE
     Dosage: 300 UNIT/ML (1.5ML) SUBQ INSULIN PEN
     Route: 058
     Dates: start: 20170828
  42. LISINOPRIL [LISINOPRIL DIHYDRATE] [Concomitant]
     Indication: HYPERTENSION
     Route: 048
  43. COUMADIN [Concomitant]
     Active Substance: WARFARIN SODIUM
     Indication: ATRIAL FIBRILLATION
     Dosage: TITRATE TO MAINTAIN THERAPEUTIC INR. 1.25MG ON SUN,TUES,THURS THEN 2.5MG ALL OTHER DAYS OF THE WEEK
     Route: 048
     Dates: start: 20171129
  44. IMDUR [Concomitant]
     Active Substance: ISOSORBIDE MONONITRATE
     Dosage: ER; QTY: 30
     Route: 048
  45. ATARAX [Concomitant]
     Active Substance: HYDROXYZINE HYDROCHLORIDE
     Indication: ANXIETY
     Dosage: TAKE 1 TAB BY MOUTH DAILY AS NEEDED FOR ANXIETY
     Route: 048
  46. JARDIANCE [Suspect]
     Active Substance: EMPAGLIFLOZIN
     Indication: TYPE 2 DIABETES MELLITUS
     Route: 048
     Dates: start: 20170828, end: 20181021
  47. JARDIANCE [Suspect]
     Active Substance: EMPAGLIFLOZIN
     Indication: DIABETES MELLITUS INADEQUATE CONTROL
  48. CIPRO [Concomitant]
     Active Substance: CIPROFLOXACIN HYDROCHLORIDE
     Indication: PRODUCT USED FOR UNKNOWN INDICATION
     Route: 048
     Dates: start: 20171129, end: 20171209
  49. COREG [Concomitant]
     Active Substance: CARVEDILOL
     Indication: ATRIAL FIBRILLATION
     Route: 048
     Dates: start: 20171129
  50. NEURONTIN [Concomitant]
     Active Substance: GABAPENTIN
     Dosage: TAKE 3 CAPSULES BY MOUTH THREE TIMES DAILY
     Route: 048
     Dates: start: 20180521
  51. NORCO [Concomitant]
     Active Substance: ACETAMINOPHEN\HYDROCODONE BITARTRATE
     Indication: PAIN
     Dosage: 5?325MG TAB QTY: 60; TAKE TWO TABLETS BY MOUTH EVERY 12 HOURS AS NEEDED MUST LAST 30 DAYS
     Route: 048
  52. LIRAGLUTIDE [Concomitant]
     Active Substance: LIRAGLUTIDE
     Indication: PRODUCT USED FOR UNKNOWN INDICATION
     Dosage: 0.6MG/0.1ML (18MG/3 ML)
     Route: 065

REACTIONS (3)
  - Cellulitis [Not Recovered/Not Resolved]
  - Perirectal abscess [Not Recovered/Not Resolved]
  - Fournier^s gangrene [Unknown]

NARRATIVE: CASE EVENT DATE: 20181007
